FAERS Safety Report 4313902-1 (Version None)
Quarter: 2004Q1

REPORT INFORMATION
  Report Type: 
  Country: None (occurrence: None)
  Receive Date: 20040305
  Receipt Date: 20040223
  Transmission Date: 20041129
  Serious: Yes (Other)
  Sender: FDA-Public Use
  Company Number: PL-JNJFOC-20040205713

PATIENT
  Age: 69 Year
  Sex: Male
  Weight: 90 kg

DRUGS (2)
  1. TOPAMAX [Suspect]
     Indication: EPILEPSY
     Dosage: 250 MG, IN 1 DAY; UNKNOWN
     Route: 065
     Dates: start: 20031223, end: 20040201
  2. PHENYTOIN (TABLETS) PHENYTOIN [Concomitant]

REACTIONS (8)
  - AMNESIA [None]
  - ATAXIA [None]
  - DIPLOPIA [None]
  - DISORIENTATION [None]
  - GAIT DISTURBANCE [None]
  - PSYCHOMOTOR AGITATION [None]
  - SLUGGISHNESS [None]
  - SPEECH DISORDER [None]
